FAERS Safety Report 26154862 (Version 1)
Quarter: 2025Q4

REPORT INFORMATION
  Report Type: Spontaneous
  Country: US (occurrence: US)
  Receive Date: 20251215
  Receipt Date: 20251215
  Transmission Date: 20260117
  Serious: No
  Sender: MICRO LABS LIMITED
  Company Number: US-MICRO LABS LIMITED-ML2025-06483

PATIENT
  Age: 84 Year
  Sex: Male
  Weight: 68 kg

DRUGS (2)
  1. BIMATOPROST [Suspect]
     Active Substance: BIMATOPROST
     Indication: Intraocular pressure increased
     Dosage: DOSE: ONE DROP IN EACH EYE?FREQUENCY: EVERY NIGHT
     Route: 047
  2. OCUVITE [Concomitant]
     Active Substance: VITAMINS
     Indication: Product used for unknown indication

REACTIONS (1)
  - Intraocular pressure increased [Unknown]
